FAERS Safety Report 6800107-5 (Version None)
Quarter: 2010Q2

REPORT INFORMATION
  Report Type: 
  Country: None (occurrence: None)
  Receive Date: 20100617
  Receipt Date: 20100610
  Transmission Date: 20101027
  Serious: Yes (Other)
  Sender: FDA-Public Use
  Company Number: A0864293A

PATIENT
  Age: 72 Year
  Sex: Female

DRUGS (6)
  1. CAMPHOR + MENTHOL LOTION (CAMPHOR + MENTHOL) [Suspect]
     Indication: PRURITUS
     Dosage: 1 APPLICATION (S) / PER DAY / TOPICAL
     Route: 061
     Dates: start: 20100610
  2. EYE MEDICATION (UNSPEC.) (FORMULAITON UNKNOWN) (EYE MEDICATION (UNSPEC [Suspect]
     Indication: DRY EYE
     Dosage: INTRAOCULAR
     Route: 031
     Dates: start: 20100610
  3. ATENOLOL [Concomitant]
  4. LANSOPRAZOLE [Concomitant]
  5. NARCO [Concomitant]
  6. DIURETIC [Concomitant]

REACTIONS (4)
  - FATIGUE [None]
  - PRODUCT ODOUR ABNORMAL [None]
  - VISION BLURRED [None]
  - VISUAL IMPAIRMENT [None]
